FAERS Safety Report 25418689 (Version 1)
Quarter: 2025Q2

REPORT INFORMATION
  Report Type: Report from Study
  Country: KR (occurrence: KR)
  Receive Date: 20250610
  Receipt Date: 20250610
  Transmission Date: 20250716
  Serious: Yes (Other)
  Sender: JOHNSON AND JOHNSON
  Company Number: KR-JNJFOC-20250601755

PATIENT

DRUGS (1)
  1. INFLIXIMAB [Suspect]
     Active Substance: INFLIXIMAB
     Indication: Crohn^s disease
     Route: 041

REACTIONS (21)
  - Pancreatitis [Unknown]
  - Pneumothorax [Unknown]
  - Obstruction gastric [Unknown]
  - Neuropathy peripheral [Unknown]
  - Leukopenia [Unknown]
  - Pulmonary tuberculosis [Unknown]
  - Intestinal stenosis [Unknown]
  - Arthritis [Unknown]
  - Alopecia [Unknown]
  - Acne [Unknown]
  - Hyperuricaemia [Unknown]
  - Gastrooesophageal reflux disease [Unknown]
  - Anal fistula [Unknown]
  - Infusion related reaction [Unknown]
  - Liver function test abnormal [Unknown]
  - Therapeutic response decreased [Unknown]
  - Headache [Unknown]
  - Urticaria [Unknown]
  - Psoriasis [Unknown]
  - Upper respiratory tract infection [Unknown]
  - Helicobacter infection [Unknown]
